FAERS Safety Report 6458951-2 (Version None)
Quarter: 2009Q4

REPORT INFORMATION
  Report Type: 
  Country: None (occurrence: None)
  Receive Date: 20091127
  Receipt Date: 20091116
  Transmission Date: 20100525
  Serious: Yes (Death, Hospitalization, Other)
  Sender: FDA-Public Use
  Company Number: FR-ELI_LILLY_AND_COMPANY-FR200911003833

PATIENT
  Sex: Female

DRUGS (12)
  1. PROZAC [Suspect]
     Indication: DEPRESSION
     Dosage: 20 MG, DAILY (1/D)
     Route: 048
     Dates: start: 20090618
  2. AMLOR [Concomitant]
     Dates: start: 20090618
  3. PLAVIX [Concomitant]
     Dates: start: 20090618
  4. LORAZEPAM [Concomitant]
     Dosage: 1 MG, EVERY 8 HRS
     Dates: start: 20090618
  5. PEPSANE [Concomitant]
     Dates: start: 20090618
  6. DOLIPRANE [Concomitant]
     Dates: start: 20090618
  7. IXPRIM [Concomitant]
     Dates: start: 20090818
  8. RANITIDINE HCL [Concomitant]
     Dates: start: 20090618
  9. DEXERYL [Concomitant]
     Dates: start: 20090618
  10. DITROPAN [Concomitant]
     Dates: start: 20090618
  11. PREVISCAN [Concomitant]
  12. TAVANIC [Concomitant]
     Indication: BRONCHITIS

REACTIONS (9)
  - BRONCHOPNEUMONIA [None]
  - CACHEXIA [None]
  - CERVICAL VERTEBRAL FRACTURE [None]
  - DEATH [None]
  - DIARRHOEA [None]
  - FALL [None]
  - HYPONATRAEMIA [None]
  - JOINT INJURY [None]
  - RENAL FAILURE [None]
